FAERS Safety Report 21422371 (Version 2)
Quarter: 2022Q4

REPORT INFORMATION
  Report Type: Spontaneous
  Country: IT (occurrence: IT)
  Receive Date: 20221007
  Receipt Date: 20221121
  Transmission Date: 20230112
  Serious: Yes (Other)
  Sender: FDA-Public Use
  Company Number: IT-AMGEN-ITASP2022168190

PATIENT
  Age: 48 Year
  Sex: Male

DRUGS (1)
  1. XGEVA [Suspect]
     Active Substance: DENOSUMAB
     Indication: Bone giant cell tumour
     Dosage: UNK
     Route: 065

REACTIONS (2)
  - Malignant transformation [Unknown]
  - Bone giant cell tumour [Unknown]

NARRATIVE: CASE EVENT DATE: 20210101
